FAERS Safety Report 20947783 (Version 1)
Quarter: 2022Q2

REPORT INFORMATION
  Report Type: Spontaneous
  Country: TW (occurrence: TW)
  Receive Date: 20220611
  Receipt Date: 20220611
  Transmission Date: 20220720
  Serious: Yes (Life-Threatening, Hospitalization, Other)
  Sender: FDA-Public Use
  Company Number: TW-MACLEODS PHARMACEUTICALS US LTD-MAC2022035933

PATIENT

DRUGS (16)
  1. LIDOCAINE [Interacting]
     Active Substance: LIDOCAINE
     Indication: General anaesthesia
     Dosage: 50 MILLIGRAM, SINGLE
     Route: 042
  2. DESFLURANE [Interacting]
     Active Substance: DESFLURANE
     Indication: Maintenance of anaesthesia
     Dosage: UNK
     Route: 065
  3. PROPOFOL [Interacting]
     Active Substance: PROPOFOL
     Indication: General anaesthesia
     Dosage: 100 MILLIGRAM, SINGLE
     Route: 042
  4. FENTANYL [Interacting]
     Active Substance: FENTANYL
     Indication: General anaesthesia
     Dosage: 100 MICROGRAM, SINGLE
     Route: 042
  5. IMIPRAMINE [Interacting]
     Active Substance: IMIPRAMINE
     Indication: Panic disorder
     Dosage: 25 MILLIGRAM, QD; HS, LONG TERM TREATMENT
     Route: 065
  6. IMIPRAMINE [Interacting]
     Active Substance: IMIPRAMINE
     Indication: Major depression
  7. CISATRACURIUM [Interacting]
     Active Substance: CISATRACURIUM
     Indication: Endotracheal intubation
     Dosage: 10 MILLIGRAM, SINGLE
     Route: 042
  8. SEVOFLURANE [Interacting]
     Active Substance: SEVOFLURANE
     Indication: Maintenance of anaesthesia
     Dosage: UNK
     Route: 065
  9. ALPRAZOLAM [Interacting]
     Active Substance: ALPRAZOLAM
     Indication: Major depression
     Dosage: 0.5 MILLIGRAM, BID
     Route: 065
  10. ALPRAZOLAM [Interacting]
     Active Substance: ALPRAZOLAM
     Indication: Panic disorder
  11. ESTAZOLAM [Interacting]
     Active Substance: ESTAZOLAM
     Indication: Major depression
     Dosage: 2 MILLIGRAM
     Route: 065
  12. ESTAZOLAM [Interacting]
     Active Substance: ESTAZOLAM
     Indication: Panic disorder
  13. SEROQUEL [Interacting]
     Active Substance: QUETIAPINE FUMARATE
     Indication: Major depression
     Dosage: 50 MILLIGRAM, QD; HS
     Route: 065
  14. SEROQUEL [Interacting]
     Active Substance: QUETIAPINE FUMARATE
     Indication: Panic disorder
  15. PROPRANOLOL [Concomitant]
     Active Substance: PROPRANOLOL HYDROCHLORIDE
     Indication: Hypertension
     Dosage: 10 MILLIGRAM, BID;HYPERTENSION WAS UNDER CONTROL WITH PROPRANOLOL 10 MG BID TREATMENT FOR 10 YEARS
     Route: 065
  16. OXYGEN [Concomitant]
     Active Substance: OXYGEN
     Indication: Product used for unknown indication
     Dosage: UNK
     Route: 065

REACTIONS (3)
  - Procedural hypotension [Recovered/Resolved]
  - Bradycardia [Recovered/Resolved]
  - Drug interaction [Recovered/Resolved]
